FAERS Safety Report 7641869-7 (Version None)
Quarter: 2011Q3

REPORT INFORMATION
  Report Type: 
  Country: None (occurrence: None)
  Receive Date: 20110728
  Receipt Date: 20110718
  Transmission Date: 20111222
  Serious: Yes (Other)
  Sender: FDA-Public Use
  Company Number: JP-ROCHE-791644

PATIENT

DRUGS (2)
  1. RIBAVIRIN [Suspect]
     Indication: HEPATITIS C
     Dosage: GROUP 1: 600-800 MG, GROUP 2: 400 MG
     Route: 048
  2. PEGINTERFERON ALFA-2B [Suspect]
     Indication: HEPATITIS C
     Dosage: MEDIAN RANGE: 1.5 MG/KG
     Route: 058

REACTIONS (7)
  - DEPRESSION [None]
  - DECREASED APPETITE [None]
  - DYSPNOEA [None]
  - RHEUMATOID ARTHRITIS [None]
  - FATIGUE [None]
  - RETINAL HAEMORRHAGE [None]
  - ANAEMIA [None]
